FAERS Safety Report 19145116 (Version 2)
Quarter: 2021Q3

REPORT INFORMATION
  Report Type: Spontaneous
  Country: JP (occurrence: JP)
  Receive Date: 20210416
  Receipt Date: 20210709
  Transmission Date: 20211014
  Serious: Yes (Hospitalization, Other)
  Sender: FDA-Public Use
  Company Number: JP-MYLANLABS-2021M1021865

PATIENT
  Age: 71 Year
  Sex: Male

DRUGS (3)
  1. PREDONINE [Suspect]
     Active Substance: PREDNISOLONE
     Indication: MESENTERIC PANNICULITIS
     Route: 048
  2. PREDONINE [Suspect]
     Active Substance: PREDNISOLONE
     Dosage: 30 MILLIGRAM, QD
     Route: 048
  3. CICLOSPORIN [Suspect]
     Active Substance: CYCLOSPORINE
     Indication: MESENTERIC PANNICULITIS
     Dosage: 150 MILLIGRAM, QD, SCHEDULED FOR 2 MONTHS
     Route: 065

REACTIONS (7)
  - Pneumonia bacterial [Unknown]
  - Cognitive disorder [Unknown]
  - Off label use [Unknown]
  - Haemophagocytic lymphohistiocytosis [Recovering/Resolving]
  - Escherichia infection [Unknown]
  - Steroid diabetes [Unknown]
  - Mycobacterium avium complex infection [Recovering/Resolving]
